FAERS Safety Report 5315819-2 (Version None)
Quarter: 2007Q2

REPORT INFORMATION
  Report Type: 
  Country: None (occurrence: None)
  Receive Date: 20070503
  Receipt Date: 20070425
  Transmission Date: 20071010
  Serious: Yes (Hospitalization)
  Sender: FDA-Public Use
  Company Number: 489444

PATIENT
  Age: 36 Month
  Sex: Female

DRUGS (7)
  1. ARTIST [Suspect]
     Indication: CARDIAC ANEURYSM
     Route: 048
     Dates: start: 20060725
  2. LUPRAC [Concomitant]
     Indication: DRUG USE FOR UNKNOWN INDICATION
     Route: 065
     Dates: start: 20060630
  3. ACETYLSALICYLIC ACID SRT [Concomitant]
     Indication: DRUG USE FOR UNKNOWN INDICATION
     Route: 065
     Dates: start: 20060701
  4. GLYCERYL TRINITRATE [Concomitant]
     Indication: DRUG USE FOR UNKNOWN INDICATION
     Route: 065
     Dates: start: 20060701
  5. MAGNESIUM OXIDE [Concomitant]
     Indication: DRUG USE FOR UNKNOWN INDICATION
     Route: 065
     Dates: start: 20060913
  6. PANTOSIN [Concomitant]
     Indication: DRUG USE FOR UNKNOWN INDICATION
     Route: 065
     Dates: start: 20060913
  7. RENIVACE [Concomitant]
     Indication: DRUG USE FOR UNKNOWN INDICATION
     Route: 065
     Dates: start: 20060701

REACTIONS (12)
  - ALTERED STATE OF CONSCIOUSNESS [None]
  - COLD SWEAT [None]
  - DAYDREAMING [None]
  - HEART RATE INCREASED [None]
  - MALAISE [None]
  - MENTAL IMPAIRMENT [None]
  - MOBILITY DECREASED [None]
  - MOROSE [None]
  - SOMNOLENCE [None]
  - UNRESPONSIVE TO STIMULI [None]
  - VISION BLURRED [None]
  - YAWNING [None]
